FAERS Safety Report 11114266 (Version 1)
Quarter: 2015Q2

REPORT INFORMATION
  Report Type: Spontaneous
  Country: US (occurrence: US)
  Receive Date: 20150514
  Receipt Date: 20150514
  Transmission Date: 20150821
  Serious: No
  Sender: FDA-Public Use
  Company Number: US-GLAXOSMITHKLINE-US2015029906

PATIENT
  Age: 61 Year
  Sex: Female

DRUGS (1)
  1. FLONASE [Suspect]
     Active Substance: FLUTICASONE PROPIONATE
     Indication: HYPERSENSITIVITY
     Dosage: UNK
     Route: 045
     Dates: start: 20150302, end: 20150302

REACTIONS (7)
  - Pharyngeal oedema [Recovering/Resolving]
  - Dry throat [Recovering/Resolving]
  - Choking sensation [Recovering/Resolving]
  - Cough [Recovering/Resolving]
  - Nonspecific reaction [Recovering/Resolving]
  - Aphonia [Recovering/Resolving]
  - Dysphonia [Recovering/Resolving]

NARRATIVE: CASE EVENT DATE: 20150303
